FAERS Safety Report 21789341 (Version 1)
Quarter: 2022Q4

REPORT INFORMATION
  Report Type: Report from Study
  Country: CZ (occurrence: CZ)
  Receive Date: 20221228
  Receipt Date: 20221228
  Transmission Date: 20230112
  Serious: Yes (Other)
  Sender: FDA-Public Use
  Company Number: CZ-TEVA-2022-CZ-2840365

PATIENT

DRUGS (4)
  1. ETOPOSIDE [Suspect]
     Active Substance: ETOPOSIDE
     Indication: Autologous haematopoietic stem cell transplant
     Dosage: ADDITIONAL INFO: AS A PART OF TEAM CONDITIONING REGIMEN
     Route: 065
  2. THIOTEPA [Suspect]
     Active Substance: THIOTEPA
     Indication: Autologous haematopoietic stem cell transplant
     Dosage: ADDITIONAL INFO: AS A PART OF TEAM CONDITIONING REGIMEN
     Route: 065
  3. CYTARABINE [Suspect]
     Active Substance: CYTARABINE
     Indication: Autologous haematopoietic stem cell transplant
     Dosage: ADDITIONAL INFO: AS A PART OF TEAM CONDITIONING REGIMEN
     Route: 065
  4. MELPHALAN [Suspect]
     Active Substance: MELPHALAN
     Indication: Autologous haematopoietic stem cell transplant
     Dosage: ADDITIONAL INFO: AS A PART OF TEAM CONDITIONING REGIMEN
     Route: 065

REACTIONS (1)
  - Pneumonia [Unknown]
